FAERS Safety Report 4559577-8 (Version None)
Quarter: 2005Q1

REPORT INFORMATION
  Report Type: 
  Country: None (occurrence: None)
  Receive Date: 20050119
  Receipt Date: 20050107
  Transmission Date: 20050727
  Serious: Yes (Hospitalization, Other)
  Sender: FDA-Public Use
  Company Number: 2004240829BE

PATIENT
  Age: 60 Year
  Sex: Female
  Weight: 53 kg

DRUGS (2)
  1. AROMASIN [Suspect]
     Indication: ILL-DEFINED DISORDER
     Dosage: 25 MG (25 MG, DAY), ORAL
     Route: 048
     Dates: start: 20040912, end: 20041020
  2. FUROSEMIDE [Suspect]
     Indication: CARDIAC FAILURE
     Dosage: ORAL
     Route: 048
     Dates: start: 20000101, end: 20041001

REACTIONS (3)
  - ARTHRALGIA [None]
  - DRUG INTERACTION [None]
  - PURPURA [None]
